FAERS Safety Report 10362041 (Version 1)
Quarter: 2014Q1

REPORT INFORMATION
  Report Type: Spontaneous
  Country: US (occurrence: None)
  Receive Date: 20140306
  Receipt Date: 20140306
  Transmission Date: 20141002
  Serious: Yes (Hospitalization)
  Sender: FDA-Public Use
  Company Number: 163-21880-13074798

PATIENT
  Age: 58 Year
  Sex: Female
  Weight: 46.8 kg

DRUGS (16)
  1. REVLIMID (LENALIDOMIDE) (5 MILLIGRAM, CAPSULES) [Suspect]
     Indication: PLASMA CELL MYELOMA
     Dosage: 5 MG, 21 IN 28 D, PO
     Route: 048
     Dates: start: 20130516
  2. GABAPENTIN (GABAPENTIN) [Concomitant]
  3. HYDROXYZINE HCL (HYDROXYZINE HYDROCHLORIDE) [Concomitant]
  4. RENAGEL (SEVELAMER HYDROCHLORIDE) (TABLETS) [Concomitant]
  5. LORAZEPAM (LORAZEPAM) (TABLETS) [Concomitant]
  6. METOPROLOL SUCCINATE (METOPROLOL SUCCINATE) [Concomitant]
  7. PANTOPRAZOLE SODIUM (PANTOPRAZOLE SODIUM) [Concomitant]
  8. FULL SPECTRUM B (COMBEVIT C) [Concomitant]
  9. LOPERAMIDE (LOPERAMIDE) [Concomitant]
  10. ONDANSETRON (ONDANSETRON) [Concomitant]
  11. MULTIVITAMINS (MULTIVITAMINS) [Concomitant]
  12. PROCHLORPERAZINE (PROCHLORPERAZINE) [Concomitant]
  13. ACYCLOVIR (ACICLOVIR) [Concomitant]
  14. ALLOPURINOL (ALLOPURINOL) [Concomitant]
  15. OMEPRAZOLE (OMEPRAZOLE) [Concomitant]
  16. INSULIN DETEMIR (INSULIN DETEMIR) [Concomitant]

REACTIONS (1)
  - Cerebrovascular accident [None]
